FAERS Safety Report 22650707 (Version 1)
Quarter: 2023Q2

REPORT INFORMATION
  Report Type: Spontaneous
  Country: CN (occurrence: CN)
  Receive Date: 20230628
  Receipt Date: 20230628
  Transmission Date: 20230722
  Serious: Yes (Other)
  Sender: FDA-Public Use
  Company Number: CN-SPECGX-T202301468

PATIENT
  Age: 50 Year
  Sex: Female
  Weight: 59 kg

DRUGS (3)
  1. ACETAMINOPHEN\OXYCODONE HYDROCHLORIDE [Suspect]
     Active Substance: ACETAMINOPHEN\OXYCODONE HYDROCHLORIDE
     Indication: Procedural pain
     Dosage: 1 DOSAGE FORM, QD
     Route: 048
     Dates: start: 20230615, end: 20230615
  2. ACETAMINOPHEN\OXYCODONE HYDROCHLORIDE [Suspect]
     Active Substance: ACETAMINOPHEN\OXYCODONE HYDROCHLORIDE
     Indication: Wound complication
  3. TRAMADOL [Suspect]
     Active Substance: TRAMADOL
     Indication: Wound complication
     Dosage: 100 MILLIGRAM
     Route: 030
     Dates: start: 20230615

REACTIONS (2)
  - Abdominal discomfort [Recovering/Resolving]
  - Vomiting [Recovered/Resolved]

NARRATIVE: CASE EVENT DATE: 20230615
